FAERS Safety Report 13109979 (Version 1)
Quarter: 2017Q1

REPORT INFORMATION
  Report Type: Spontaneous
  Country: US (occurrence: US)
  Receive Date: 20170112
  Receipt Date: 20170112
  Transmission Date: 20170428
  Serious: Yes (Other)
  Sender: FDA-Public Use
  Company Number: US-ROCHE-1101327

PATIENT
  Sex: Female

DRUGS (3)
  1. HEPARIN [Concomitant]
     Active Substance: HEPARIN SODIUM
     Dosage: 5000 UNITS
     Route: 040
  2. HEPARIN [Concomitant]
     Active Substance: HEPARIN SODIUM
     Dosage: 1000 UNITS AN HOUR
     Route: 065
  3. ACTIVASE [Suspect]
     Active Substance: ALTEPLASE
     Indication: ACUTE MYOCARDIAL INFARCTION
     Route: 065

REACTIONS (3)
  - Pain [Recovered/Resolved]
  - Nausea [Unknown]
  - Reperfusion arrhythmia [Unknown]
